FAERS Safety Report 4497818-6 (Version None)
Quarter: 2004Q4

REPORT INFORMATION
  Report Type: 
  Country: None (occurrence: None)
  Receive Date: 20041110
  Receipt Date: 20030121
  Transmission Date: 20050328
  Serious: Yes (Hospitalization)
  Sender: FDA-Public Use
  Company Number: US-GLAXOSMITHKLINE-A0393425A

PATIENT
  Age: 17 Year
  Sex: Female
  Weight: 56.8 kg

DRUGS (2)
  1. WELLBUTRIN [Suspect]
     Indication: DEPRESSION
     Route: 048
     Dates: start: 20021028, end: 20021116
  2. GABITRIL [Suspect]
     Indication: DEPRESSION
     Route: 048
     Dates: start: 20021028, end: 20021116

REACTIONS (5)
  - COMPLEX PARTIAL SEIZURES [None]
  - EPILEPTIC AURA [None]
  - ROAD TRAFFIC ACCIDENT [None]
  - STATUS EPILEPTICUS [None]
  - TONIC CLONIC MOVEMENTS [None]
